FAERS Safety Report 10779864 (Version 1)
Quarter: 2015Q1

REPORT INFORMATION
  Report Type: Spontaneous
  Country: US (occurrence: None)
  Receive Date: 20150206
  Receipt Date: 20150206
  Transmission Date: 20150721
  Serious: No
  Sender: FDA-Public Use
  Company Number: None

PATIENT
  Age: 58 Year
  Sex: Female

DRUGS (13)
  1. AMPYRA [Concomitant]
     Active Substance: DALFAMPRIDINE
  2. TYSABRI [Concomitant]
     Active Substance: NATALIZUMAB
  3. PROVIGIL [Concomitant]
     Active Substance: MODAFINIL
  4. AMPYRA [Suspect]
     Active Substance: DALFAMPRIDINE
     Indication: MULTIPLE SCLEROSIS
     Route: 048
     Dates: start: 201111, end: 201310
  5. GLUCOSAMINE [Concomitant]
     Active Substance: GLUCOSAMINE
  6. CLONAZEPAM. [Concomitant]
     Active Substance: CLONAZEPAM
  7. FLAXSEE OIL [Concomitant]
  8. NEURONTIN [Concomitant]
     Active Substance: GABAPENTIN
  9. ASPIRIN. [Concomitant]
     Active Substance: ASPIRIN
  10. ZOCOR [Concomitant]
     Active Substance: SIMVASTATIN
  11. LEVOTHYROXINE [Concomitant]
     Active Substance: LEVOTHYROXINE
  12. MAXZIDE [Concomitant]
     Active Substance: HYDROCHLOROTHIAZIDE\TRIAMTERENE
  13. MULTIVITAMINS [Concomitant]
     Active Substance: VITAMINS

REACTIONS (2)
  - Condition aggravated [None]
  - Pain in extremity [None]

NARRATIVE: CASE EVENT DATE: 20131004
